FAERS Safety Report 11070821 (Version 1)
Quarter: 2015Q2

REPORT INFORMATION
  Report Type: Spontaneous
  Country: US (occurrence: US)
  Receive Date: 20150428
  Receipt Date: 20150428
  Transmission Date: 20150821
  Serious: Yes (Other)
  Sender: FDA-Public Use
  Company Number: US-JNJCP-30000279396

PATIENT
  Sex: Female

DRUGS (1)
  1. NEUTROGENA SKIN AID [Suspect]
     Active Substance: GLYCERIN\PRAMOXINE HYDROCHLORIDE
     Indication: PRODUCT USED FOR UNKNOWN INDICATION
     Route: 061

REACTIONS (1)
  - Squamous cell carcinoma [Unknown]
